FAERS Safety Report 9033109 (Version 2)
Quarter: 2013Q2

REPORT INFORMATION
  Report Type: Spontaneous
  Country: US (occurrence: US)
  Receive Date: 20130128
  Receipt Date: 20130412
  Transmission Date: 20140414
  Serious: No
  Sender: FDA-Public Use
  Company Number: US-PFIZER INC-2013030791

PATIENT
  Sex: Male

DRUGS (2)
  1. NITROGLYCERIN [Suspect]
     Indication: CHEST PAIN
     Dosage: 0.3 MG, AS NEEDED
     Route: 060
  2. NITROSTAT [Suspect]
     Dosage: UNK MG, UNK
     Route: 060

REACTIONS (2)
  - Drug effect incomplete [Unknown]
  - Feeling abnormal [Unknown]
